FAERS Safety Report 8936108 (Version 1)
Quarter: 2012Q4

REPORT INFORMATION
  Report Type: Report from Study
  Country: DE (occurrence: DE)
  Receive Date: 20121130
  Receipt Date: 20121130
  Transmission Date: 20130627
  Serious: Yes (Hospitalization)
  Sender: FDA-Public Use
  Company Number: DE-PFIZER INC-2012292169

PATIENT
  Age: 57 Year
  Sex: Male
  Weight: 85 kg

DRUGS (4)
  1. IRINOTECAN HCL [Suspect]
     Indication: MALIGNANT NEOPLASM OF BRAIN
     Dosage: 240 mg, UNK
     Route: 042
  2. IRINOTECAN HCL [Suspect]
     Dosage: 254 mg, UNK
     Dates: start: 20121026
  3. BEVACIZUMAB [Suspect]
     Indication: MALIGNANT NEOPLASM OF BRAIN
     Dosage: 850 mg, UNK
     Route: 042
  4. BEVACIZUMAB [Suspect]
     Dosage: 850 mg, UNK
     Route: 042
     Dates: start: 20121026

REACTIONS (2)
  - Epilepsy [Not Recovered/Not Resolved]
  - Spinal fracture [Unknown]
